FAERS Safety Report 20853780 (Version 2)
Quarter: 2022Q3

REPORT INFORMATION
  Report Type: Spontaneous
  Country: CA (occurrence: None)
  Receive Date: 20220520
  Receipt Date: 20220714
  Transmission Date: 20221027
  Serious: Yes (Other)
  Sender: FDA-Public Use
  Company Number: CA-ROCHE-3096785

PATIENT
  Age: 67 Year
  Sex: Male

DRUGS (19)
  1. ACTEMRA [Suspect]
     Active Substance: TOCILIZUMAB
     Indication: Product used for unknown indication
     Route: 065
  2. AZATHIOPRINE [Suspect]
     Active Substance: AZATHIOPRINE
     Indication: Product used for unknown indication
     Route: 065
  3. ENBREL [Suspect]
     Active Substance: ETANERCEPT
     Indication: Rheumatoid arthritis
     Dosage: THERAPY DURATION 366.0
     Route: 058
  4. ARAVA [Suspect]
     Active Substance: LEFLUNOMIDE
     Indication: Product used for unknown indication
     Route: 065
  5. SULFASALAZINE [Suspect]
     Active Substance: SULFASALAZINE
     Indication: Product used for unknown indication
     Route: 065
  6. ORENCIA [Suspect]
     Active Substance: ABATACEPT
     Indication: Product used for unknown indication
     Route: 065
  7. METHOTREXATE [Suspect]
     Active Substance: METHOTREXATE
     Indication: Rheumatoid arthritis
     Route: 065
  8. METHOTREXATE [Suspect]
     Active Substance: METHOTREXATE
     Route: 058
  9. METHOTREXATE [Suspect]
     Active Substance: METHOTREXATE
     Route: 058
  10. HYDROXYCHLOROQUINE SULFATE [Suspect]
     Active Substance: HYDROXYCHLOROQUINE SULFATE
     Indication: Product used for unknown indication
     Route: 065
  11. HYDROXYCHLOROQUINE SULFATE [Suspect]
     Active Substance: HYDROXYCHLOROQUINE SULFATE
     Route: 065
  12. GOLD SODIUM THIOMALATE [Suspect]
     Active Substance: GOLD SODIUM THIOMALATE
     Indication: Product used for unknown indication
     Route: 065
  13. IMURAN [Suspect]
     Active Substance: AZATHIOPRINE
     Indication: Product used for unknown indication
     Route: 065
  14. ASPIRIN [Concomitant]
     Active Substance: ASPIRIN
     Indication: Myocardial infarction
     Route: 065
  15. ASPIRIN [Concomitant]
     Active Substance: ASPIRIN
     Route: 065
  16. TIAPROFENIC ACID [Concomitant]
     Active Substance: TIAPROFENIC ACID
     Indication: Product used for unknown indication
     Route: 065
  17. ASPIRIN [Concomitant]
     Active Substance: ASPIRIN
     Route: 065
  18. ASPIRIN [Concomitant]
     Active Substance: ASPIRIN
     Route: 065
  19. PLAQUENIL [Concomitant]
     Active Substance: HYDROXYCHLOROQUINE SULFATE
     Indication: Product used for unknown indication
     Route: 065

REACTIONS (13)
  - Limb discomfort [Recovered/Resolved]
  - Hand deformity [Recovered/Resolved]
  - Rheumatoid arthritis [Recovered/Resolved]
  - Liver disorder [Recovered/Resolved]
  - Pain in extremity [Recovered/Resolved]
  - Gait inability [Recovered/Resolved]
  - Localised infection [Recovered/Resolved]
  - Musculoskeletal discomfort [Recovered/Resolved]
  - Insomnia [Recovered/Resolved]
  - Back pain [Recovered/Resolved]
  - Therapeutic product effect decreased [Recovered/Resolved]
  - Shoulder operation [Recovered/Resolved]
  - Drug ineffective [Unknown]
